FAERS Safety Report 24866242 (Version 1)
Quarter: 2025Q1

REPORT INFORMATION
  Report Type: Spontaneous
  Country: US (occurrence: US)
  Receive Date: 20250121
  Receipt Date: 20250121
  Transmission Date: 20250409
  Serious: Yes (Death)
  Sender: STRIDES
  Company Number: US-STRIDES ARCOLAB LIMITED-2025SP000866

PATIENT
  Age: 9 Year
  Sex: Male

DRUGS (12)
  1. ETOPOSIDE [Suspect]
     Active Substance: ETOPOSIDE
     Indication: Osteosarcoma
     Route: 048
  2. ETOPOSIDE [Suspect]
     Active Substance: ETOPOSIDE
     Indication: Metastases to lung
  3. ETOPOSIDE [Suspect]
     Active Substance: ETOPOSIDE
     Indication: Metastases to central nervous system
  4. CABOZANTINIB [Suspect]
     Active Substance: CABOZANTINIB
     Indication: Osteosarcoma
     Route: 065
  5. CABOZANTINIB [Suspect]
     Active Substance: CABOZANTINIB
     Indication: Metastases to lung
  6. CABOZANTINIB [Suspect]
     Active Substance: CABOZANTINIB
     Indication: Metastases to central nervous system
  7. NIVOLUMAB [Suspect]
     Active Substance: NIVOLUMAB
     Indication: Osteosarcoma
     Route: 065
  8. NIVOLUMAB [Suspect]
     Active Substance: NIVOLUMAB
     Indication: Metastases to lung
  9. NIVOLUMAB [Suspect]
     Active Substance: NIVOLUMAB
     Indication: Metastases to central nervous system
  10. SIROLIMUS [Suspect]
     Active Substance: SIROLIMUS
     Indication: Metastases to central nervous system
     Route: 048
  11. SIROLIMUS [Suspect]
     Active Substance: SIROLIMUS
     Indication: Osteosarcoma
  12. SIROLIMUS [Suspect]
     Active Substance: SIROLIMUS
     Indication: Osteosarcoma

REACTIONS (2)
  - Malignant neoplasm progression [Fatal]
  - Drug ineffective for unapproved indication [Fatal]
